FAERS Safety Report 6324610-X (Version None)
Quarter: 2009Q3

REPORT INFORMATION
  Report Type: 
  Country: None (occurrence: None)
  Receive Date: 20090824
  Receipt Date: 20090330
  Transmission Date: 20100115
  Serious: No
  Sender: FDA-Public Use
  Company Number: US-ABBOTT-09P-163-0565555-00

PATIENT
  Sex: Male
  Weight: 90.8 kg

DRUGS (8)
  1. NIASPAN [Suspect]
     Indication: HIGH DENSITY LIPOPROTEIN DECREASED
     Route: 048
     Dates: start: 20020101, end: 20060101
  2. NIASPAN [Suspect]
     Route: 048
     Dates: start: 20060101
  3. LIPITOR [Concomitant]
     Indication: HIGH DENSITY LIPOPROTEIN DECREASED
     Route: 048
  4. TAMBOCOR [Concomitant]
     Indication: ATRIAL FIBRILLATION
     Route: 048
     Dates: start: 19970101
  5. FLOMAX [Concomitant]
     Indication: PROSTATOMEGALY
     Route: 045
  6. ASPIRIN [Concomitant]
     Indication: CARDIAC DISORDER
  7. MULTI-VITAMIN [Concomitant]
     Indication: MEDICAL DIET
     Route: 048
  8. FISH OIL [Concomitant]
     Indication: MEDICAL DIET
     Route: 048

REACTIONS (3)
  - DIARRHOEA [None]
  - HIGH DENSITY LIPOPROTEIN DECREASED [None]
  - PRURITUS [None]
